FAERS Safety Report 6660598-X (Version None)
Quarter: 2010Q1

REPORT INFORMATION
  Report Type: 
  Country: None (occurrence: None)
  Receive Date: 20100331
  Receipt Date: 20100329
  Transmission Date: 20100710
  Serious: Yes (Death)
  Sender: FDA-Public Use
  Company Number: US-CELGENEUS-163-21880-10032644

PATIENT
  Sex: Male

DRUGS (2)
  1. REVLIMID [Suspect]
     Indication: MULTIPLE MYELOMA
     Route: 048
     Dates: start: 20080601, end: 20100101
  2. REVLIMID [Suspect]
     Route: 048
     Dates: start: 20080401, end: 20080601

REACTIONS (1)
  - MYOCARDIAL INFARCTION [None]
